FAERS Safety Report 5944357-9 (Version None)
Quarter: 2008Q4

REPORT INFORMATION
  Report Type: 
  Country: None (occurrence: None)
  Receive Date: 20081106
  Receipt Date: 20081106
  Transmission Date: 20090506
  Serious: Yes (Life-Threatening, Hospitalization)
  Sender: FDA-Public Use
  Company Number: None

PATIENT
  Sex: Male

DRUGS (7)
  1. VYVANSE [Suspect]
     Indication: ATTENTION DEFICIT/HYPERACTIVITY DISORDER
     Dosage: 30 MG DAILY ORAL
     Route: 048
  2. TUMS [Concomitant]
  3. UNKNOWN HEADACHE MEDICATION [Concomitant]
  4. NIASPAN CR [Concomitant]
  5. NICORETTE [Concomitant]
  6. NICOTINE [Concomitant]
  7. QUETIAPINE FUMARATE [Concomitant]

REACTIONS (7)
  - AGITATION [None]
  - ANXIETY [None]
  - DEPRESSED LEVEL OF CONSCIOUSNESS [None]
  - ELECTROCARDIOGRAM QT PROLONGED [None]
  - INCORRECT DOSE ADMINISTERED [None]
  - MEDICATION ERROR [None]
  - TACHYCARDIA [None]
